FAERS Safety Report 9200673 (Version 1)
Quarter: 2013Q1

REPORT INFORMATION
  Report Type: Spontaneous
  Country: IT (occurrence: IT)
  Receive Date: 20130331
  Receipt Date: 20130331
  Transmission Date: 20140127
  Serious: Yes (Other)
  Sender: FDA-Public Use
  Company Number: IT-TEVA-394202ISR

PATIENT
  Age: 47 Year
  Sex: Female

DRUGS (1)
  1. OLANZAPINA TEVA [Suspect]
     Indication: PSYCHOTIC DISORDER
     Dosage: 5 MILLIGRAM DAILY;
     Route: 048
     Dates: start: 20121220, end: 20130115

REACTIONS (4)
  - Psychotic disorder [Not Recovered/Not Resolved]
  - Delusion [Not Recovered/Not Resolved]
  - Dissociation [Not Recovered/Not Resolved]
  - Drug ineffective [Unknown]
